FAERS Safety Report 25829650 (Version 1)
Quarter: 2025Q3

REPORT INFORMATION
  Report Type: Spontaneous
  Country: GB (occurrence: GB)
  Receive Date: 20250922
  Receipt Date: 20250922
  Transmission Date: 20251021
  Serious: Yes (Death)
  Sender: TEVA
  Company Number: GB-TEVA-VS-3373567

PATIENT
  Age: 71 Year
  Sex: Male

DRUGS (1)
  1. LENALIDOMIDE [Suspect]
     Active Substance: LENALIDOMIDE
     Indication: Plasma cell myeloma
     Route: 065

REACTIONS (3)
  - Death [Fatal]
  - Inappropriate schedule of product administration [Unknown]
  - Malaise [Unknown]

NARRATIVE: CASE EVENT DATE: 20250101
